FAERS Safety Report 11592622 (Version 1)
Quarter: 2015Q4

REPORT INFORMATION
  Report Type: Spontaneous
  Country: US (occurrence: US)
  Receive Date: 20151005
  Receipt Date: 20151005
  Transmission Date: 20160304
  Serious: Yes (Hospitalization)
  Sender: FDA-Public Use
  Company Number: US-UNITED THERAPEUTICS-UNT-2015-011994

PATIENT
  Age: 59 Year
  Sex: Female
  Weight: 81.63 kg

DRUGS (1)
  1. TYVASO [Suspect]
     Active Substance: TREPROSTINIL
     Indication: PULMONARY ARTERIAL HYPERTENSION
     Dosage: 18-54 ?G, QID
     Dates: start: 20150804

REACTIONS (5)
  - Pulmonary oedema [Unknown]
  - Muscular weakness [Unknown]
  - Oedema peripheral [Unknown]
  - Dyspnoea [Unknown]
  - Abasia [Unknown]

NARRATIVE: CASE EVENT DATE: 20150918
